FAERS Safety Report 10079563 (Version 1)
Quarter: 2014Q2

REPORT INFORMATION
  Report Type: Spontaneous
  Country: US (occurrence: None)
  Receive Date: 20140414
  Receipt Date: 20140414
  Transmission Date: 20141212
  Serious: Yes (Disabling)
  Sender: FDA-Public Use
  Company Number: None

PATIENT
  Age: 31 Year
  Sex: Male
  Weight: 95.26 kg

DRUGS (1)
  1. PROAIR HFA [Suspect]
     Dosage: 2 PUFF
     Route: 055

REACTIONS (1)
  - Open angle glaucoma [None]
